FAERS Safety Report 15480186 (Version 2)
Quarter: 2018Q4

REPORT INFORMATION
  Report Type: Spontaneous
  Country: DK (occurrence: DK)
  Receive Date: 20181009
  Receipt Date: 20181025
  Transmission Date: 20190205
  Serious: Yes (Other)
  Sender: FDA-Public Use
  Company Number: DK-LINDE-DK-LHC-2018230

PATIENT
  Age: 19 Year
  Sex: Female

DRUGS (1)
  1. NITROUS OXIDE/OXYGEN 50:50 [Suspect]
     Active Substance: NITROUS OXIDE\OXYGEN
     Indication: LABOUR PAIN
     Route: 055
     Dates: start: 20180908, end: 20180908

REACTIONS (3)
  - Unresponsive to stimuli [Recovered/Resolved]
  - Stridor [Recovered/Resolved]
  - Cyanosis [Recovered/Resolved]

NARRATIVE: CASE EVENT DATE: 20180908
